FAERS Safety Report 6264673-3 (Version None)
Quarter: 2009Q3

REPORT INFORMATION
  Report Type: 
  Country: None (occurrence: None)
  Receive Date: 20090710
  Receipt Date: 20090702
  Transmission Date: 20100115
  Serious: Yes (Hospitalization)
  Sender: FDA-Public Use
  Company Number: PHHO2008JP04016

PATIENT
  Sex: Female
  Weight: 67 kg

DRUGS (8)
  1. LEPONEX / CLOZARIL (CLOZAPINE) LEX+TAB [Suspect]
     Indication: SCHIZOPHRENIA
     Dosage: 12.5 MG DAILY
     Route: 048
     Dates: start: 20011205
  2. LEPONEX / CLOZARIL (CLOZAPINE) LEX+TAB [Suspect]
     Dosage: 600 MG DAILY DIVIDED INTO 3 DOSES
     Route: 048
     Dates: start: 20030318
  3. LEPONEX / CLOZARIL (CLOZAPINE) LEX+TAB [Suspect]
     Dosage: 600 MG DAILY DIVIDED INTO 4 DOSES DAILY
     Route: 048
     Dates: start: 20050426
  4. EURODIN [Concomitant]
     Indication: INSOMNIA
     Dosage: UNK
     Route: 048
  5. LAXOBERON [Concomitant]
     Indication: CONSTIPATION
     Dosage: UNK
  6. MYSLEE [Concomitant]
     Indication: INSOMNIA
     Dosage: UNK
     Dates: start: 20021029
  7. MAGNESIUM OXIDE [Concomitant]
     Indication: CONSTIPATION
     Dosage: UNK
     Dates: start: 20080122
  8. WYPAX [Concomitant]
     Indication: SCHIZOPHRENIA
     Dosage: UNK
     Dates: start: 20080318, end: 20080324

REACTIONS (11)
  - ANXIETY [None]
  - APATHY [None]
  - COMPULSIONS [None]
  - DECREASED ACTIVITY [None]
  - DELUSION OF REFERENCE [None]
  - EXPOSURE TO NOISE [None]
  - FLAT AFFECT [None]
  - OBSESSIVE-COMPULSIVE DISORDER [None]
  - PERSECUTORY DELUSION [None]
  - POVERTY OF THOUGHT CONTENT [None]
  - SCHIZOPHRENIA [None]
